FAERS Safety Report 12759751 (Version 1)
Quarter: 2016Q3

REPORT INFORMATION
  Report Type: Spontaneous
  Country: US (occurrence: US)
  Receive Date: 20160919
  Receipt Date: 20160919
  Transmission Date: 20161109
  Serious: Yes (Other)
  Sender: FDA-Public Use
  Company Number: PHHY2016US128463

PATIENT
  Sex: Female

DRUGS (9)
  1. ZOFRAN ODT [Suspect]
     Active Substance: ONDANSETRON HYDROCHLORIDE
     Dosage: 1 DF, Q4H
     Route: 048
     Dates: start: 20130315, end: 20131124
  2. ZOFRAN ODT [Suspect]
     Active Substance: ONDANSETRON HYDROCHLORIDE
     Dosage: 4 MG, Q6H
     Route: 065
     Dates: start: 20131227
  3. ZOFRAN ODT [Suspect]
     Active Substance: ONDANSETRON HYDROCHLORIDE
     Dosage: 4 MG, Q6H
     Route: 065
     Dates: start: 20140614
  4. ONDANSETRON AUROBINDO [Suspect]
     Active Substance: ONDANSETRON HYDROCHLORIDE
     Indication: VOMITING
     Dosage: 4 MG, Q4H
     Route: 042
     Dates: start: 20130315, end: 20130315
  5. ONDANSETRON TEVA//ONDANSETRON [Suspect]
     Active Substance: ONDANSETRON
     Indication: VOMITING
     Dosage: 4 MG, Q6H
     Route: 065
     Dates: start: 20131126
  6. ZOFRAN ODT [Suspect]
     Active Substance: ONDANSETRON HYDROCHLORIDE
     Indication: VOMITING
     Dosage: 1 DF, Q4H
     Route: 048
  7. ZOFRAN ODT [Suspect]
     Active Substance: ONDANSETRON HYDROCHLORIDE
     Indication: VOMITING
     Dosage: 4 MG, Q6H
     Route: 065
     Dates: start: 20131127
  8. ZOFRAN ODT [Suspect]
     Active Substance: ONDANSETRON HYDROCHLORIDE
     Dosage: 4 MG, Q6H
     Route: 065
     Dates: start: 20150110
  9. ZOFRAN [Suspect]
     Active Substance: ONDANSETRON HYDROCHLORIDE
     Indication: PRODUCT USED FOR UNKNOWN INDICATION
     Dosage: 4 MG, UNK
     Route: 042
     Dates: start: 20130616

REACTIONS (19)
  - Back pain [Unknown]
  - Headache [Unknown]
  - Gastritis [Unknown]
  - Product use issue [Unknown]
  - Road traffic accident [Unknown]
  - Gastroenteritis [Unknown]
  - Tooth abscess [Unknown]
  - Limb injury [Unknown]
  - Abdominal pain upper [Unknown]
  - Joint injury [Unknown]
  - Urinary tract infection [Unknown]
  - Dyshidrotic eczema [Unknown]
  - Anaemia [Unknown]
  - Craniocerebral injury [Unknown]
  - Groin pain [Unknown]
  - Clavicle fracture [Unknown]
  - Haematoma [Unknown]
  - Lymphadenopathy [Unknown]
  - Costovertebral angle tenderness [Unknown]
